FAERS Safety Report 5446204-0 (Version None)
Quarter: 2007Q3

REPORT INFORMATION
  Report Type: 
  Country: None (occurrence: None)
  Receive Date: 20070731
  Receipt Date: 20070724
  Transmission Date: 20080115
  Serious: Yes (Other)
  Sender: FDA-Public Use
  Company Number: US-2007-006491

PATIENT
  Age: 66 Year
  Sex: Male

DRUGS (1)
  1. MAGNEVIST [Suspect]
     Indication: ANGIOGRAM
     Dosage: 1 DOSE, INTRAVENOUS
     Route: 042
     Dates: start: 20070213, end: 20070213

REACTIONS (1)
  - BLOOD CREATININE INCREASED [None]
